FAERS Safety Report 4420859-1 (Version None)
Quarter: 2004Q3

REPORT INFORMATION
  Report Type: 
  Country: None (occurrence: None)
  Receive Date: 20040809
  Receipt Date: 20040809
  Transmission Date: 20050211
  Serious: Yes (Disabling)
  Sender: FDA-Public Use
  Company Number: None

PATIENT
  Age: 61 Year
  Sex: Male
  Weight: 96.1626 kg

DRUGS (3)
  1. CRESTOR [Suspect]
     Dates: start: 20040501
  2. LIPITOR [Suspect]
     Dates: start: 19980101, end: 20040501
  3. FOLDGUARD [Suspect]
     Dates: start: 19990101, end: 20040701

REACTIONS (3)
  - BREAST PAIN [None]
  - PAIN IN EXTREMITY [None]
  - POLYNEUROPATHY [None]
